FAERS Safety Report 25189030 (Version 1)
Quarter: 2025Q2

REPORT INFORMATION
  Report Type: Spontaneous
  Country: US (occurrence: US)
  Receive Date: 20250411
  Receipt Date: 20250411
  Transmission Date: 20250717
  Serious: No
  Sender: ROCHE
  Company Number: US-ROCHE-10000256060

PATIENT
  Sex: Female

DRUGS (15)
  1. ACTEMRA [Suspect]
     Active Substance: TOCILIZUMAB
     Indication: Asthma
     Route: 058
  2. ACTEMRA [Suspect]
     Active Substance: TOCILIZUMAB
  3. PREDNISONE [Concomitant]
     Active Substance: PREDNISONE
  4. ROPINIROLE ? TAB 1MG [Concomitant]
  5. FLUTICASONE-AEP 500-50MC [Concomitant]
  6. GEMTESA TAB 75MG [Concomitant]
  7. HYDROCODONE-TAB 10-325MG [Concomitant]
  8. SERTRALINE H TAB 50MG [Concomitant]
  9. CEPHALEXIN [Concomitant]
     Active Substance: CEPHALEXIN
  10. VENTOLIN HFA [Concomitant]
     Active Substance: ALBUTEROL SULFATE
  11. ADVAIR DISKUS [Concomitant]
     Active Substance: FLUTICASONE PROPIONATE\SALMETEROL XINAFOATE
  12. SYNTHROID TAB 50MCG [Concomitant]
  13. CLONAZEPAM [Concomitant]
     Active Substance: CLONAZEPAM
  14. LATANOPROST [Concomitant]
     Active Substance: LATANOPROST
  15. MONTELUKAST SODIUM [Concomitant]
     Active Substance: MONTELUKAST SODIUM

REACTIONS (2)
  - Off label use [Unknown]
  - No adverse event [Unknown]
